FAERS Safety Report 20753690 (Version 1)
Quarter: 2022Q2

REPORT INFORMATION
  Report Type: Spontaneous
  Country: US (occurrence: None)
  Receive Date: 20220426
  Receipt Date: 20220426
  Transmission Date: 20220721
  Serious: No
  Sender: FDA-Public Use
  Company Number: US-ROCHE-2952698

PATIENT
  Sex: Female

DRUGS (12)
  1. ESBRIET [Suspect]
     Active Substance: PIRFENIDONE
     Indication: Idiopathic pulmonary fibrosis
     Route: 048
     Dates: start: 20210823
  2. CHOLECALCIFEROL [Concomitant]
     Active Substance: CHOLECALCIFEROL
     Dosage: 50 MCG (2000 UNIT), CAPSULE
     Route: 048
  3. ASCORBIC ACID [Concomitant]
     Active Substance: ASCORBIC ACID
     Dosage: 250 MG
     Route: 048
     Dates: start: 20201022
  4. ZETIA [Concomitant]
     Active Substance: EZETIMIBE
     Dates: start: 20200306
  5. SYNTHROID [Concomitant]
     Active Substance: LEVOTHYROXINE SODIUM
     Dosage: 75 MCG, TAKEN 1 TABLET BY MOUTH DAILY, 90 TABLET, 3 REFILLS
     Dates: start: 20200306
  6. COZAAR [Concomitant]
     Active Substance: LOSARTAN POTASSIUM
     Dosage: TAKEN 1 TABLET BY MOUTH DAILY, 90 TABLET, 3 REFILLS
     Dates: start: 20200715
  7. PROTONIX [Concomitant]
     Active Substance: PANTOPRAZOLE SODIUM
     Dosage: EC TABLET, TAKE 1 TABLET BY MOUTH DAILY
     Route: 048
     Dates: start: 20210907, end: 20211221
  8. ESBRIET [Concomitant]
     Active Substance: PIRFENIDONE
     Dosage: TAKE 1 TABLET BY MOUTH 3 TIMES A DAY FOR 7 DAYS, THEN TAKE 2 TABLETS BY MOUTH 3 TIMES A DAY FOR 7 DA
     Route: 048
     Dates: start: 20210908, end: 20211221
  9. PRAVACHOL [Concomitant]
     Active Substance: PRAVASTATIN SODIUM
     Dosage: TAKE 80 MG BY MOUTH NIGHTLY
     Route: 048
  10. ZOCOR [Concomitant]
     Active Substance: SIMVASTATIN
     Dates: start: 20191013, end: 20211021
  11. COENZYME Q10 [Concomitant]
     Active Substance: DIETARY SUPPLEMENT\UBIDECARENONE
     Dosage: TAKE 100 MG BY MOUTH DAILY
     Route: 048
  12. ZINC SULFATE [Concomitant]
     Active Substance: ZINC SULFATE
     Dosage: 220 (50) MG, TAKE 220 MG BY MOUTH DAILY
     Route: 048
     Dates: start: 20211221

REACTIONS (6)
  - Fatigue [Unknown]
  - Insomnia [Unknown]
  - Lethargy [Unknown]
  - Dizziness [Unknown]
  - Decreased appetite [Unknown]
  - Nausea [Unknown]
